FAERS Safety Report 5513795-0 (Version None)
Quarter: 2007Q4

REPORT INFORMATION
  Report Type: 
  Country: None (occurrence: None)
  Receive Date: 20071113
  Receipt Date: 20071101
  Transmission Date: 20080405
  Serious: Yes (Hospitalization)
  Sender: FDA-Public Use
  Company Number: PHBS2007US18485

PATIENT
  Age: 45 Year
  Sex: Male

DRUGS (6)
  1. CYCLOSPORINE [Suspect]
     Dosage: 225 MG/DAY
     Route: 065
  2. METHYLPREDNISOLONE [Concomitant]
     Dosage: 4 MG/DAY
     Route: 065
  3. ATENOLOL [Concomitant]
  4. HYDROCHLOROTHIAZIDE [Concomitant]
  5. PRAZOSIN HCL [Concomitant]
  6. ASPIRIN [Concomitant]

REACTIONS (24)
  - ABDOMINAL PAIN LOWER [None]
  - ABDOMINAL TENDERNESS [None]
  - BACTEROIDES INFECTION [None]
  - BLADDER CALCULUS REMOVAL [None]
  - BLOOD CREATININE INCREASED [None]
  - CALCULUS BLADDER [None]
  - COLECTOMY [None]
  - DIVERTICULAR PERFORATION [None]
  - DIVERTICULITIS [None]
  - DIVERTICULUM [None]
  - ESCHERICHIA INFECTION [None]
  - ESCHERICHIA URINARY TRACT INFECTION [None]
  - GASTROINTESTINAL NECROSIS [None]
  - HYPOTENSION [None]
  - KIDNEY ENLARGEMENT [None]
  - KIDNEY FIBROSIS [None]
  - LAPAROTOMY [None]
  - NEPHROLITHIASIS [None]
  - PERIDIVERTICULAR ABSCESS [None]
  - PYELONEPHRITIS [None]
  - PYREXIA [None]
  - URETERAL STENT INSERTION [None]
  - URETERIC STENOSIS [None]
  - WHITE BLOOD CELL COUNT INCREASED [None]
